FAERS Safety Report 4914179-6 (Version None)
Quarter: 2006Q1

REPORT INFORMATION
  Report Type: 
  Country: None (occurrence: None)
  Receive Date: 20060113
  Receipt Date: 20051114
  Transmission Date: 20060701
  Serious: No
  Sender: FDA-Public Use
  Company Number: 2005SP003980

PATIENT
  Age: 62 Year
  Sex: Female
  Weight: 68.0396 kg

DRUGS (9)
  1. LUNESTA [Suspect]
     Indication: SLEEP APNOEA SYNDROME
     Dosage: SEE IMAGE
     Route: 048
     Dates: start: 20051001, end: 20051113
  2. LUNESTA [Suspect]
     Indication: SLEEP APNOEA SYNDROME
     Dosage: SEE IMAGE
     Route: 048
     Dates: start: 20051001, end: 20051113
  3. REMICADE [Concomitant]
  4. TRICOR [Concomitant]
  5. SIMVASTATIN [Concomitant]
  6. ATORVASTATIN CALCIUM [Concomitant]
  7. VALIUM [Concomitant]
  8. HYDROCODONE [Concomitant]
  9. AMBIEN [Concomitant]

REACTIONS (2)
  - DIZZINESS [None]
  - DYSGEUSIA [None]
